FAERS Safety Report 7239365-4 (Version None)
Quarter: 2011Q1

REPORT INFORMATION
  Report Type: 
  Country: None (occurrence: None)
  Receive Date: 20110121
  Receipt Date: 20110118
  Transmission Date: 20110831
  Serious: Yes (Hospitalization, Other)
  Sender: FDA-Public Use
  Company Number: HU-ABBOTT-11P-076-0695920-00

PATIENT
  Sex: Female
  Weight: 51 kg

DRUGS (3)
  1. MELOXICAM [Concomitant]
     Indication: RHEUMATOID ARTHRITIS
     Route: 048
     Dates: end: 20101108
  2. HUMIRA [Suspect]
     Indication: RHEUMATOID ARTHRITIS
     Route: 058
     Dates: start: 20070101, end: 20101108
  3. METHYLPREDNISOLONE ACETATE [Concomitant]
     Indication: RHEUMATOID ARTHRITIS
     Route: 048
     Dates: start: 20101122, end: 20101205

REACTIONS (6)
  - POLYNEUROPATHY [None]
  - BRONCHITIS [None]
  - SYSTEMIC LUPUS ERYTHEMATOSUS [None]
  - ARTHRALGIA [None]
  - HYPOAESTHESIA [None]
  - ANTIPHOSPHOLIPID SYNDROME [None]
